FAERS Safety Report 8950857 (Version 1)
Quarter: 2012Q4

REPORT INFORMATION
  Report Type: Spontaneous
  Country: US (occurrence: None)
  Receive Date: 20121130
  Receipt Date: 20121130
  Transmission Date: 20130627
  Serious: No
  Sender: FDA-Public Use
  Company Number: None

PATIENT
  Age: 71 Year
  Sex: Male

DRUGS (1)
  1. MONTELUKAST [Suspect]
     Indication: ASTHMA
     Route: 048
     Dates: start: 20121109, end: 20121129

REACTIONS (4)
  - Product quality issue [None]
  - Rhinorrhoea [None]
  - Lacrimation increased [None]
  - Asthma [None]
